FAERS Safety Report 16841403 (Version 2)
Quarter: 2019Q3

REPORT INFORMATION
  Report Type: Report from Study
  Country: US (occurrence: US)
  Receive Date: 20190923
  Receipt Date: 20190927
  Transmission Date: 20191005
  Serious: Yes (Life-Threatening, Other)
  Sender: FDA-Public Use
  Company Number: US-GLAXOSMITHKLINE-2019-TSO02611-US

PATIENT
  Age: 60 Year
  Sex: Female

DRUGS (3)
  1. NIRAPARIB [Suspect]
     Active Substance: NIRAPARIB
     Indication: LEIOMYOSARCOMA METASTATIC
  2. NIRAPARIB [Suspect]
     Active Substance: NIRAPARIB
     Indication: MALIGNANT CONNECTIVE TISSUE NEOPLASM
     Dosage: 200 MG, QD, 7.30AM WITHOUT FOOD
     Route: 048
     Dates: start: 20190712, end: 20190726
  3. NIRAPARIB [Suspect]
     Active Substance: NIRAPARIB
     Indication: NEOPLASM MALIGNANT
     Dosage: 100 MG, DAILY- 7:30AM - WITHOUT FOOD
     Dates: start: 20190917

REACTIONS (23)
  - Vertigo [Not Recovered/Not Resolved]
  - Neoplasm progression [Unknown]
  - Anxiety [Not Recovered/Not Resolved]
  - Flatulence [Not Recovered/Not Resolved]
  - Dizziness [Recovered/Resolved]
  - Fatigue [Not Recovered/Not Resolved]
  - Somnolence [Unknown]
  - Depression [Not Recovered/Not Resolved]
  - Constipation [Recovered/Resolved]
  - Dyspnoea [Unknown]
  - Asthenia [Unknown]
  - Urinary tract infection [Unknown]
  - Squamous cell carcinoma [Unknown]
  - Nausea [Recovered/Resolved]
  - Product use in unapproved indication [Unknown]
  - Platelet count decreased [Recovered/Resolved]
  - Tumour invasion [Unknown]
  - Anaemia [Recovered/Resolved]
  - Apathy [Unknown]
  - Contusion [Recovered/Resolved]
  - Decreased appetite [Not Recovered/Not Resolved]
  - Diarrhoea [Not Recovered/Not Resolved]
  - Insomnia [Not Recovered/Not Resolved]

NARRATIVE: CASE EVENT DATE: 201909
